FAERS Safety Report 20013536 (Version 1)
Quarter: 2021Q4

REPORT INFORMATION
  Report Type: Spontaneous
  Country: IN (occurrence: IN)
  Receive Date: 20211029
  Receipt Date: 20211029
  Transmission Date: 20220303
  Serious: Yes (Life-Threatening, Hospitalization, Other)
  Sender: FDA-Public Use
  Company Number: IN-MLMSERVICE-20211014-3168442-1

PATIENT
  Age: 33 Year
  Sex: Female

DRUGS (2)
  1. NAPROXEN [Suspect]
     Active Substance: NAPROXEN
     Indication: Arthralgia
     Dosage: INCREASED THE DOSE TO 500 MG/DAY
     Route: 048
  2. NAPROXEN [Suspect]
     Active Substance: NAPROXEN
     Dosage: 250 MG
     Route: 048

REACTIONS (2)
  - Meningitis aseptic [Recovered/Resolved]
  - Self-medication [Unknown]
